FAERS Safety Report 6082470-9 (Version None)
Quarter: 2009Q1

REPORT INFORMATION
  Report Type: 
  Country: None (occurrence: None)
  Receive Date: 20090202
  Receipt Date: 20070621
  Transmission Date: 20090719
  Serious: Yes (Other)
  Sender: FDA-Public Use
  Company Number: 264778

PATIENT
  Age: 50 Year
  Sex: Female

DRUGS (2)
  1. NOVOLOG [Suspect]
     Dosage: 11 IU, QD, SUBCUTANEOUS
     Route: 058
     Dates: start: 20070621
  2. LANTUS [Concomitant]

REACTIONS (1)
  - INCORRECT DOSE ADMINISTERED [None]
